FAERS Safety Report 5326851-7 (Version None)
Quarter: 2007Q2

REPORT INFORMATION
  Report Type: 
  Country: None (occurrence: None)
  Receive Date: 20070507
  Receipt Date: 20070425
  Transmission Date: 20071010
  Serious: Yes (Hospitalization)
  Sender: FDA-Public Use
  Company Number: B0458882A

PATIENT
  Age: 49 Year
  Sex: Female

DRUGS (3)
  1. AMERGE [Suspect]
     Indication: MIGRAINE
     Dosage: TWICE PER DAY
     Dates: start: 20061201, end: 20061201
  2. RIZATRIPTAN BENZOATE [Suspect]
  3. IBUPROFEN [Suspect]
     Indication: MIGRAINE
     Dosage: AS REQUIRED

REACTIONS (3)
  - AUTOIMMUNE HEPATITIS [None]
  - CHRONIC HEPATITIS [None]
  - HEPATITIS VIRAL [None]
